FAERS Safety Report 20183768 (Version 6)
Quarter: 2025Q3

REPORT INFORMATION
  Report Type: Spontaneous
  Country: EU (occurrence: EU)
  Receive Date: 20211214
  Receipt Date: 20250806
  Transmission Date: 20251020
  Serious: Yes (Other)
  Sender: MYLAN
  Company Number: EU-FRESENIUS KABI-FK202111536

PATIENT
  Age: 66 Year
  Sex: Male

DRUGS (80)
  1. DOXORUBICIN [Suspect]
     Active Substance: DOXORUBICIN
     Indication: Plasma cell myeloma
  2. DOXORUBICIN [Suspect]
     Active Substance: DOXORUBICIN
  3. DOXORUBICIN [Suspect]
     Active Substance: DOXORUBICIN
     Route: 065
  4. DOXORUBICIN [Suspect]
     Active Substance: DOXORUBICIN
     Route: 065
  5. DOXORUBICIN [Suspect]
     Active Substance: DOXORUBICIN
  6. DOXORUBICIN [Suspect]
     Active Substance: DOXORUBICIN
  7. DOXORUBICIN [Suspect]
     Active Substance: DOXORUBICIN
     Route: 065
  8. DOXORUBICIN [Suspect]
     Active Substance: DOXORUBICIN
     Route: 065
  9. BORTEZOMIB [Suspect]
     Active Substance: BORTEZOMIB
     Indication: Plasma cell myeloma
  10. BORTEZOMIB [Suspect]
     Active Substance: BORTEZOMIB
  11. BORTEZOMIB [Suspect]
     Active Substance: BORTEZOMIB
     Route: 065
  12. BORTEZOMIB [Suspect]
     Active Substance: BORTEZOMIB
     Route: 065
  13. BORTEZOMIB [Suspect]
     Active Substance: BORTEZOMIB
  14. BORTEZOMIB [Suspect]
     Active Substance: BORTEZOMIB
  15. BORTEZOMIB [Suspect]
     Active Substance: BORTEZOMIB
     Route: 065
  16. BORTEZOMIB [Suspect]
     Active Substance: BORTEZOMIB
     Route: 065
  17. LENALIDOMIDE [Suspect]
     Active Substance: LENALIDOMIDE
     Indication: Plasma cell myeloma
  18. LENALIDOMIDE [Suspect]
     Active Substance: LENALIDOMIDE
  19. LENALIDOMIDE [Suspect]
     Active Substance: LENALIDOMIDE
     Route: 065
  20. LENALIDOMIDE [Suspect]
     Active Substance: LENALIDOMIDE
     Route: 065
  21. LENALIDOMIDE [Suspect]
     Active Substance: LENALIDOMIDE
  22. LENALIDOMIDE [Suspect]
     Active Substance: LENALIDOMIDE
  23. LENALIDOMIDE [Suspect]
     Active Substance: LENALIDOMIDE
     Route: 065
  24. LENALIDOMIDE [Suspect]
     Active Substance: LENALIDOMIDE
     Route: 065
  25. LENALIDOMIDE [Suspect]
     Active Substance: LENALIDOMIDE
  26. LENALIDOMIDE [Suspect]
     Active Substance: LENALIDOMIDE
     Route: 065
  27. LENALIDOMIDE [Suspect]
     Active Substance: LENALIDOMIDE
  28. LENALIDOMIDE [Suspect]
     Active Substance: LENALIDOMIDE
     Route: 065
  29. DEXAMETHASONE SODIUM PHOSPHATE [Suspect]
     Active Substance: DEXAMETHASONE SODIUM PHOSPHATE
     Indication: Plasma cell myeloma
     Route: 065
  30. DEXAMETHASONE SODIUM PHOSPHATE [Suspect]
     Active Substance: DEXAMETHASONE SODIUM PHOSPHATE
  31. DEXAMETHASONE SODIUM PHOSPHATE [Suspect]
     Active Substance: DEXAMETHASONE SODIUM PHOSPHATE
  32. DEXAMETHASONE SODIUM PHOSPHATE [Suspect]
     Active Substance: DEXAMETHASONE SODIUM PHOSPHATE
     Route: 065
  33. DEXAMETHASONE SODIUM PHOSPHATE [Suspect]
     Active Substance: DEXAMETHASONE SODIUM PHOSPHATE
     Route: 065
  34. DEXAMETHASONE SODIUM PHOSPHATE [Suspect]
     Active Substance: DEXAMETHASONE SODIUM PHOSPHATE
  35. DEXAMETHASONE SODIUM PHOSPHATE [Suspect]
     Active Substance: DEXAMETHASONE SODIUM PHOSPHATE
  36. DEXAMETHASONE SODIUM PHOSPHATE [Suspect]
     Active Substance: DEXAMETHASONE SODIUM PHOSPHATE
     Route: 065
  37. DEXAMETHASONE SODIUM PHOSPHATE [Suspect]
     Active Substance: DEXAMETHASONE SODIUM PHOSPHATE
     Route: 065
  38. DEXAMETHASONE SODIUM PHOSPHATE [Suspect]
     Active Substance: DEXAMETHASONE SODIUM PHOSPHATE
  39. DEXAMETHASONE SODIUM PHOSPHATE [Suspect]
     Active Substance: DEXAMETHASONE SODIUM PHOSPHATE
  40. DEXAMETHASONE SODIUM PHOSPHATE [Suspect]
     Active Substance: DEXAMETHASONE SODIUM PHOSPHATE
     Route: 065
  41. DEXAMETHASONE SODIUM PHOSPHATE [Suspect]
     Active Substance: DEXAMETHASONE SODIUM PHOSPHATE
  42. DEXAMETHASONE SODIUM PHOSPHATE [Suspect]
     Active Substance: DEXAMETHASONE SODIUM PHOSPHATE
  43. DEXAMETHASONE SODIUM PHOSPHATE [Suspect]
     Active Substance: DEXAMETHASONE SODIUM PHOSPHATE
     Route: 065
  44. DEXAMETHASONE SODIUM PHOSPHATE [Suspect]
     Active Substance: DEXAMETHASONE SODIUM PHOSPHATE
     Route: 065
  45. NINLARO [Suspect]
     Active Substance: IXAZOMIB CITRATE
     Indication: Plasma cell myeloma
     Route: 048
  46. NINLARO [Suspect]
     Active Substance: IXAZOMIB CITRATE
  47. NINLARO [Suspect]
     Active Substance: IXAZOMIB CITRATE
  48. NINLARO [Suspect]
     Active Substance: IXAZOMIB CITRATE
     Route: 048
  49. NINLARO [Suspect]
     Active Substance: IXAZOMIB CITRATE
     Route: 048
  50. NINLARO [Suspect]
     Active Substance: IXAZOMIB CITRATE
  51. NINLARO [Suspect]
     Active Substance: IXAZOMIB CITRATE
  52. NINLARO [Suspect]
     Active Substance: IXAZOMIB CITRATE
     Route: 048
  53. NINLARO [Suspect]
     Active Substance: IXAZOMIB CITRATE
     Route: 048
  54. NINLARO [Suspect]
     Active Substance: IXAZOMIB CITRATE
     Route: 048
  55. NINLARO [Suspect]
     Active Substance: IXAZOMIB CITRATE
  56. NINLARO [Suspect]
     Active Substance: IXAZOMIB CITRATE
  57. CYCLOPHOSPHAMIDE [Suspect]
     Active Substance: CYCLOPHOSPHAMIDE
     Indication: Plasma cell myeloma
  58. CYCLOPHOSPHAMIDE [Suspect]
     Active Substance: CYCLOPHOSPHAMIDE
     Route: 065
  59. CYCLOPHOSPHAMIDE [Suspect]
     Active Substance: CYCLOPHOSPHAMIDE
     Route: 065
  60. CYCLOPHOSPHAMIDE [Suspect]
     Active Substance: CYCLOPHOSPHAMIDE
  61. PREDNISONE [Suspect]
     Active Substance: PREDNISONE
     Indication: Plasma cell myeloma
  62. PREDNISONE [Suspect]
     Active Substance: PREDNISONE
     Route: 065
  63. PREDNISONE [Suspect]
     Active Substance: PREDNISONE
     Route: 065
  64. PREDNISONE [Suspect]
     Active Substance: PREDNISONE
  65. VELCADE [Suspect]
     Active Substance: BORTEZOMIB
     Indication: Plasma cell myeloma
  66. VELCADE [Suspect]
     Active Substance: BORTEZOMIB
     Route: 065
  67. VELCADE [Suspect]
     Active Substance: BORTEZOMIB
     Route: 065
  68. VELCADE [Suspect]
     Active Substance: BORTEZOMIB
  69. POMALIDOMIDE [Concomitant]
     Active Substance: POMALIDOMIDE
     Indication: Plasma cell myeloma
  70. POMALIDOMIDE [Concomitant]
     Active Substance: POMALIDOMIDE
     Route: 065
  71. POMALIDOMIDE [Concomitant]
     Active Substance: POMALIDOMIDE
     Route: 065
  72. POMALIDOMIDE [Concomitant]
     Active Substance: POMALIDOMIDE
  73. ISATUXIMAB [Concomitant]
     Active Substance: ISATUXIMAB
     Indication: Plasma cell myeloma
  74. ISATUXIMAB [Concomitant]
     Active Substance: ISATUXIMAB
     Route: 065
  75. ISATUXIMAB [Concomitant]
     Active Substance: ISATUXIMAB
     Route: 065
  76. ISATUXIMAB [Concomitant]
     Active Substance: ISATUXIMAB
  77. TOLODODEKIN ALFA [Concomitant]
     Active Substance: TOLODODEKIN ALFA
     Indication: Plasma cell myeloma
  78. TOLODODEKIN ALFA [Concomitant]
     Active Substance: TOLODODEKIN ALFA
     Route: 065
  79. TOLODODEKIN ALFA [Concomitant]
     Active Substance: TOLODODEKIN ALFA
     Route: 065
  80. TOLODODEKIN ALFA [Concomitant]
     Active Substance: TOLODODEKIN ALFA

REACTIONS (8)
  - Pain [Recovered/Resolved]
  - Polyneuropathy [Recovering/Resolving]
  - Rash [Recovered/Resolved]
  - Fatigue [Recovered/Resolved]
  - Disease progression [Unknown]
  - Malignant neoplasm progression [Unknown]
  - Neuralgia [Recovered/Resolved]
  - Therapeutic product effect incomplete [Unknown]
